FAERS Safety Report 13860577 (Version 1)
Quarter: 2017Q3

REPORT INFORMATION
  Report Type: Spontaneous
  Country: US (occurrence: US)
  Receive Date: 20170811
  Receipt Date: 20170811
  Transmission Date: 20171127
  Serious: Yes (Hospitalization)
  Sender: FDA-Public Use
  Company Number: None

PATIENT
  Age: 21 Year
  Sex: Female

DRUGS (6)
  1. DIPHENHYDRAM [Concomitant]
  2. LACTULOSE. [Concomitant]
     Active Substance: LACTULOSE
  3. TRANSDERM-SC [Concomitant]
  4. XALKORI [Suspect]
     Active Substance: CRIZOTINIB
     Indication: ADRENAL GLAND CANCER
     Route: 048
     Dates: start: 20170711
  5. LORAZEPAM. [Concomitant]
     Active Substance: LORAZEPAM
  6. SMZ/TMP [Concomitant]
     Active Substance: SULFAMETHOXAZOLE\TRIMETHOPRIM

REACTIONS (3)
  - Unevaluable event [None]
  - Therapy change [None]
  - Pyrexia [None]

NARRATIVE: CASE EVENT DATE: 20170803
